FAERS Safety Report 9235136 (Version 1)
Quarter: 2013Q2

REPORT INFORMATION
  Report Type: Spontaneous
  Country: US (occurrence: US)
  Receive Date: 20130416
  Receipt Date: 20130416
  Transmission Date: 20140414
  Serious: No
  Sender: FDA-Public Use
  Company Number: US-009507513-1304USA004079

PATIENT
  Age: 39 Year
  Sex: Female
  Weight: 59.86 kg

DRUGS (5)
  1. NEXPLANON [Suspect]
     Dosage: 1 DF, UNK
     Route: 058
     Dates: start: 20130326
  2. PROPRANOLOL HYDROCHLORIDE [Concomitant]
  3. NORCO [Concomitant]
  4. EFFEXOR [Concomitant]
  5. MINIPRESS [Concomitant]

REACTIONS (3)
  - Implant site pain [Not Recovered/Not Resolved]
  - Medical device complication [Unknown]
  - Migraine [Unknown]
